FAERS Safety Report 20026484 (Version 1)
Quarter: 2021Q4

REPORT INFORMATION
  Report Type: Report from Study
  Country: US (occurrence: US)
  Receive Date: 20211102
  Receipt Date: 20211102
  Transmission Date: 20220303
  Serious: Yes (Other)
  Sender: FDA-Public Use
  Company Number: US-OTSUKA-2021_037894

PATIENT
  Sex: Male

DRUGS (2)
  1. CEDAZURIDINE\DECITABINE [Suspect]
     Active Substance: CEDAZURIDINE\DECITABINE
     Indication: Product used for unknown indication
     Dosage: 135 MG, QD (ON DAYS 1,3,5 OF A 28 DAYS CYCLE) CYCLE 2 DOSE DECREASED
     Route: 065
  2. CEDAZURIDINE\DECITABINE [Suspect]
     Active Substance: CEDAZURIDINE\DECITABINE
     Dosage: 135 MG, QD (ON DAYS 1,3,5 OF A 28 DAYS CYCLE)
     Route: 065

REACTIONS (2)
  - Cytopenia [Unknown]
  - Product use issue [Unknown]
